FAERS Safety Report 7251824-7 (Version None)
Quarter: 2011Q1

REPORT INFORMATION
  Report Type: 
  Country: None (occurrence: None)
  Receive Date: 20110128
  Receipt Date: 20100114
  Transmission Date: 20110831
  Serious: No
  Sender: FDA-Public Use
  Company Number: US-ABBOTT-09P-163-0608923-00

PATIENT
  Sex: Female
  Weight: 70.37 kg

DRUGS (1)
  1. HUMIRA [Suspect]
     Indication: COLITIS ULCERATIVE
     Dates: start: 20091102

REACTIONS (6)
  - PAIN IN EXTREMITY [None]
  - PRURITUS [None]
  - JOINT SWELLING [None]
  - GASTROINTESTINAL PAIN [None]
  - DIARRHOEA [None]
  - ALOPECIA [None]
